FAERS Safety Report 22649692 (Version 1)
Quarter: 2023Q2

REPORT INFORMATION
  Report Type: Spontaneous
  Country: SG (occurrence: None)
  Receive Date: 20230628
  Receipt Date: 20230628
  Transmission Date: 20230721
  Serious: Yes (Death, Other)
  Sender: FDA-Public Use
  Company Number: SG-ROCHE-3377004

PATIENT
  Age: 42 Year
  Sex: Male

DRUGS (2)
  1. AVASTIN [Suspect]
     Active Substance: BEVACIZUMAB
     Indication: Neoplasm
     Route: 065
  2. AVASTIN [Suspect]
     Active Substance: BEVACIZUMAB
     Indication: Glioblastoma

REACTIONS (3)
  - Death [Fatal]
  - Cerebrovascular accident [Unknown]
  - Dysphagia [Unknown]

NARRATIVE: CASE EVENT DATE: 20221025
